FAERS Safety Report 6701702-4 (Version None)
Quarter: 2010Q2

REPORT INFORMATION
  Report Type: 
  Country: None (occurrence: None)
  Receive Date: 20100427
  Receipt Date: 20100412
  Transmission Date: 20101027
  Serious: Yes (Other)
  Sender: FDA-Public Use
  Company Number: 010127

PATIENT
  Sex: Female

DRUGS (1)
  1. KEPPRA [Suspect]
     Dosage: (ORAL)
     Route: 048

REACTIONS (3)
  - DISORIENTATION [None]
  - DRUG TOXICITY [None]
  - TREMOR [None]
